FAERS Safety Report 9369351 (Version 1)
Quarter: 2013Q2

REPORT INFORMATION
  Report Type: Report from Study
  Country: US (occurrence: US)
  Receive Date: 20130626
  Receipt Date: 20130626
  Transmission Date: 20140414
  Serious: Yes (Other)
  Sender: FDA-Public Use
  Company Number: US-MYLANLABS-2013S1013434

PATIENT
  Age: 25 Year
  Sex: Female

DRUGS (2)
  1. METHOTREXATE [Suspect]
     Indication: DERMATOMYOSITIS
     Dosage: 35MG WEEKLY
     Route: 058
  2. PREDNISONE [Concomitant]
     Indication: DERMATOMYOSITIS
     Dosage: 20MG PER DAY
     Route: 065

REACTIONS (2)
  - Leukopenia [Recovered/Resolved]
  - Incorrect dose administered [Recovered/Resolved]
